FAERS Safety Report 24042115 (Version 1)
Quarter: 2024Q3

REPORT INFORMATION
  Report Type: Other
  Country: GB (occurrence: GB)
  Receive Date: 20240702
  Receipt Date: 20240702
  Transmission Date: 20241016
  Serious: Yes (Other)
  Sender: GLENMARK
  Company Number: None

PATIENT

DRUGS (2)
  1. GABAPENTIN [Suspect]
     Active Substance: GABAPENTIN
     Indication: Pain management
     Dosage: 600 MILLIGRAM, TID
     Route: 065
     Dates: start: 20161101, end: 20201031
  2. GABAPENTIN [Suspect]
     Active Substance: GABAPENTIN
     Indication: Back injury

REACTIONS (6)
  - Eye injury [Not Recovered/Not Resolved]
  - Medication error [Unknown]
  - Maculopathy [Unknown]
  - Vision blurred [Unknown]
  - Photophobia [Unknown]
  - Visual impairment [Unknown]

NARRATIVE: CASE EVENT DATE: 20161101
